FAERS Safety Report 12371086 (Version 1)
Quarter: 2016Q2

REPORT INFORMATION
  Report Type: Spontaneous
  Country: US (occurrence: US)
  Receive Date: 20160516
  Receipt Date: 20160516
  Transmission Date: 20160815
  Serious: No
  Sender: FDA-Public Use
  Company Number: US-BAYER-2016-092920

PATIENT
  Age: 80 Year
  Sex: Female
  Weight: 62.59 kg

DRUGS (2)
  1. ZEGERID OTC CAPSULES [Suspect]
     Active Substance: OMEPRAZOLE\SODIUM BICARBONATE
     Indication: GASTROOESOPHAGEAL REFLUX DISEASE
     Dosage: 1 DF, QD
     Route: 048
  2. TUMS SMOOTH DISSOLVE [Concomitant]

REACTIONS (2)
  - Incorrect drug administration duration [None]
  - Drug prescribing error [None]

NARRATIVE: CASE EVENT DATE: 2014
